FAERS Safety Report 17934008 (Version 1)
Quarter: 2020Q2

REPORT INFORMATION
  Report Type: Report from Study
  Country: None (occurrence: US)
  Receive Date: 20200623
  Receipt Date: 20200623
  Transmission Date: 20200714
  Serious: Yes (Other)
  Sender: FDA-Public Use
  Company Number: US-ABBVIE-20K-163-3452223-00

PATIENT
  Age: 73 Year
  Sex: Female

DRUGS (2)
  1. HUMIRA [Suspect]
     Active Substance: ADALIMUMAB
     Indication: EYE DISORDER
     Route: 058
  2. RINVOQ [Suspect]
     Active Substance: UPADACITINIB
     Indication: PRODUCT USED FOR UNKNOWN INDICATION
     Route: 048
     Dates: start: 20200210

REACTIONS (12)
  - Insomnia [Unknown]
  - Drug ineffective [Recovered/Resolved]
  - Uveitis [Unknown]
  - Arthritis [Recovered/Resolved]
  - Glaucoma [Unknown]
  - Arthropathy [Unknown]
  - Arthralgia [Unknown]
  - Hip arthroplasty [Unknown]
  - Scleritis [Unknown]
  - Pain [Recovered/Resolved]
  - Eye inflammation [Not Recovered/Not Resolved]
  - Eye pain [Not Recovered/Not Resolved]

NARRATIVE: CASE EVENT DATE: 20200613
